FAERS Safety Report 13196635 (Version 5)
Quarter: 2017Q1

REPORT INFORMATION
  Report Type: Spontaneous
  Country: IT (occurrence: IT)
  Receive Date: 20170208
  Receipt Date: 20170222
  Transmission Date: 20170428
  Serious: Yes (Other)
  Sender: FDA-Public Use
  Company Number: IT-PFIZER INC-2017055004

PATIENT
  Sex: Male

DRUGS (11)
  1. CARDIOASPIRIN [Suspect]
     Active Substance: ASPIRIN
     Dosage: 1 DF, DAILY
     Route: 048
  2. NORVASC [Suspect]
     Active Substance: AMLODIPINE BESYLATE
     Dosage: 5 MG, DAILY (5MG TABLET IN THE EVENING)
     Route: 048
  3. ROSUVASTATIN CALCIUM. [Suspect]
     Active Substance: ROSUVASTATIN CALCIUM
     Dosage: 20 MG, DAILY (ONE TABLET IN THE EVENING)
     Route: 048
  4. BRILIQUE [Suspect]
     Active Substance: TICAGRELOR
     Dosage: 90 MG, 2X/DAY
     Route: 048
  5. XANAX [Suspect]
     Active Substance: ALPRAZOLAM
     Indication: ANXIETY
     Dosage: 0.25 (TAKEN FOR LUNCH)
     Route: 065
  6. PANTORC [Suspect]
     Active Substance: PANTOPRAZOLE SODIUM
     Dosage: 40 MG, DAILY
     Route: 048
  7. METOPROLOL. [Suspect]
     Active Substance: METOPROLOL
     Dosage: HALF TABLET TWICE DAILY
     Route: 048
  8. SEACOR [Suspect]
     Active Substance: OMEGA-3 FATTY ACIDS
     Dosage: 3000 MG, DAILY
     Route: 065
  9. RAMIPRIL. [Suspect]
     Active Substance: RAMIPRIL
     Dosage: UNK
     Route: 048
  10. SEREUPIN [Suspect]
     Active Substance: PAROXETINE HYDROCHLORIDE
     Dosage: UNK
     Route: 065
  11. LEXOTAN [Suspect]
     Active Substance: BROMAZEPAM
     Dosage: 8/10 DROPS, AS NEEDED
     Route: 065

REACTIONS (3)
  - Feeling hot [Unknown]
  - Coronary artery occlusion [Unknown]
  - Panic attack [Unknown]
